FAERS Safety Report 4728922-2 (Version None)
Quarter: 2005Q3

REPORT INFORMATION
  Report Type: 
  Country: None (occurrence: None)
  Receive Date: 20050729
  Receipt Date: 20050518
  Transmission Date: 20060218
  Serious: Yes (Hospitalization, Disabling, Other)
  Sender: FDA-Public Use
  Company Number: US-GLAXOSMITHKLINE-A0559180A

PATIENT
  Age: 51 Year
  Sex: Female
  Weight: 61.8 kg

DRUGS (3)
  1. IMITREX [Suspect]
     Indication: MIGRAINE
     Dosage: 100MG TWO TIMES PER WEEK
     Route: 048
     Dates: start: 20040101, end: 20050512
  2. LEVAQUIN [Concomitant]
     Indication: SINUSITIS
  3. ASPIRIN [Concomitant]
     Indication: PROPHYLAXIS

REACTIONS (1)
  - COLITIS ISCHAEMIC [None]
